FAERS Safety Report 20553436 (Version 2)
Quarter: 2022Q3

REPORT INFORMATION
  Report Type: Report from Study
  Country: SA (occurrence: SA)
  Receive Date: 20220304
  Receipt Date: 20220722
  Transmission Date: 20221027
  Serious: Yes (Other)
  Sender: FDA-Public Use
  Company Number: SA-GLAXOSMITHKLINE-SA2022EME039685

PATIENT

DRUGS (1)
  1. BELIMUMAB [Suspect]
     Active Substance: BELIMUMAB
     Indication: Systemic lupus erythematosus
     Dosage: 10 MG/KG MONTHLY
     Route: 041
     Dates: start: 20210919, end: 20220717

REACTIONS (4)
  - Neuropathy peripheral [Not Recovered/Not Resolved]
  - Gait disturbance [Not Recovered/Not Resolved]
  - Fatigue [Not Recovered/Not Resolved]
  - Treatment failure [Unknown]

NARRATIVE: CASE EVENT DATE: 20220223
